FAERS Safety Report 7525221-0 (Version None)
Quarter: 2011Q2

REPORT INFORMATION
  Report Type: 
  Country: None (occurrence: None)
  Receive Date: 20110606
  Receipt Date: 20110531
  Transmission Date: 20111010
  Serious: Yes (Life-Threatening, Hospitalization)
  Sender: FDA-Public Use
  Company Number: US-SANOFI-AVENTIS-2011SA034876

PATIENT
  Sex: Male

DRUGS (4)
  1. MULTAQ [Suspect]
     Route: 048
  2. AMIODARONE HCL [Concomitant]
     Route: 065
  3. ACE INHIBITOR NOS [Concomitant]
     Route: 065
  4. WARFARIN SODIUM [Concomitant]
     Route: 065

REACTIONS (3)
  - VENTRICULAR TACHYCARDIA [None]
  - CARDIAC ARREST [None]
  - EJECTION FRACTION DECREASED [None]
